FAERS Safety Report 6538309-8 (Version None)
Quarter: 2010Q1

REPORT INFORMATION
  Report Type: 
  Country: None (occurrence: None)
  Receive Date: 20100112
  Receipt Date: 20100112
  Transmission Date: 20100710
  Serious: Yes (Other)
  Sender: FDA-Public Use
  Company Number: None

PATIENT
  Age: 45 Year
  Sex: Female
  Weight: 72.5755 kg

DRUGS (1)
  1. MOBIC [Suspect]
     Indication: EPICONDYLITIS
     Dosage: 15 MG 1 TABLET PER DAY PO
     Route: 048
     Dates: start: 20091215, end: 20091215

REACTIONS (3)
  - DIZZINESS [None]
  - DRUG HYPERSENSITIVITY [None]
  - DYSPNOEA [None]
